FAERS Safety Report 23436988 (Version 1)
Quarter: 2024Q1

REPORT INFORMATION
  Report Type: Spontaneous
  Country: US (occurrence: US)
  Receive Date: 20240124
  Receipt Date: 20240124
  Transmission Date: 20240410
  Serious: No
  Sender: FDA-Public Use
  Company Number: US-AMGEN-USASP2024012449

PATIENT

DRUGS (1)
  1. RIABNI [Suspect]
     Active Substance: RITUXIMAB-ARRX
     Indication: Leukaemia
     Dosage: 450 MILLIGRAM
     Route: 065

REACTIONS (2)
  - Intercepted product preparation error [Unknown]
  - Off label use [Unknown]
